FAERS Safety Report 7883758-9 (Version None)
Quarter: 2011Q4

REPORT INFORMATION
  Report Type: 
  Country: None (occurrence: None)
  Receive Date: 20111102
  Receipt Date: 20111028
  Transmission Date: 20120403
  Serious: Yes (Hospitalization)
  Sender: FDA-Public Use
  Company Number: US-B.I. PHARMACEUTICALS,INC./RIDGEFIELD-2011-BP-25202BP

PATIENT
  Sex: Female

DRUGS (9)
  1. ALBUTEROL SULFATE [Concomitant]
     Indication: CHRONIC OBSTRUCTIVE PULMONARY DISEASE
     Route: 055
  2. XANAX [Concomitant]
     Indication: ANXIETY
     Route: 048
  3. SPIRIVA [Suspect]
     Indication: CHRONIC OBSTRUCTIVE PULMONARY DISEASE
     Dosage: 18 MCG
     Route: 055
     Dates: start: 20090601
  4. DOXYCYCLINE [Concomitant]
     Indication: BRONCHITIS
     Dosage: 100 MG
     Route: 048
  5. COMBIVENT [Concomitant]
     Indication: CHRONIC OBSTRUCTIVE PULMONARY DISEASE
     Route: 055
  6. PREDNISONE [Concomitant]
     Indication: BRONCHITIS
     Route: 048
     Dates: start: 20110801
  7. PACERONE [Concomitant]
     Indication: MYOCARDIAL INFARCTION
     Dosage: 200 MG
     Route: 048
  8. SIMVASTATIN [Concomitant]
     Indication: BLOOD CHOLESTEROL INCREASED
     Route: 048
  9. JANTOVEN [Concomitant]
     Indication: MYOCARDIAL INFARCTION
     Route: 048

REACTIONS (3)
  - DYSPNOEA [None]
  - DRY MOUTH [None]
  - BRONCHITIS [None]
